FAERS Safety Report 15126912 (Version 1)
Quarter: 2018Q3

REPORT INFORMATION
  Report Type: Spontaneous
  Country: US (occurrence: US)
  Receive Date: 20180710
  Receipt Date: 20180710
  Transmission Date: 20181010
  Serious: No
  Sender: FDA-Public Use
  Company Number: US-PFIZER INC-2018275882

PATIENT
  Age: 57 Year
  Sex: Female
  Weight: 87 kg

DRUGS (1)
  1. IBRANCE [Suspect]
     Active Substance: PALBOCICLIB
     Indication: BREAST CANCER METASTATIC
     Dosage: 120 MG, CYCLIC (FOR 21 DAYS THEN 7 DAYS OFF)
     Route: 048
     Dates: start: 20180625

REACTIONS (3)
  - Asthenia [Recovering/Resolving]
  - Neoplasm progression [Unknown]
  - Nausea [Recovering/Resolving]

NARRATIVE: CASE EVENT DATE: 2018
